FAERS Safety Report 6264272-3 (Version None)
Quarter: 2009Q3

REPORT INFORMATION
  Report Type: 
  Country: None (occurrence: None)
  Receive Date: 20090706
  Receipt Date: 20081219
  Transmission Date: 20100115
  Serious: Yes (Hospitalization)
  Sender: FDA-Public Use
  Company Number: 604648

PATIENT
  Age: 38 Year
  Sex: Female

DRUGS (3)
  1. CELLCEPT [Suspect]
     Indication: SYSTEMIC LUPUS ERYTHEMATOSUS
  2. VALCYTE [Suspect]
     Indication: CYTOMEGALOVIRUS TEST
     Dosage: 400 MG INTRAVENOUS
     Route: 042
     Dates: start: 20081001
  3. PREDNISONE TAB [Concomitant]

REACTIONS (6)
  - AMENORRHOEA [None]
  - BLOOD PRESSURE DECREASED [None]
  - CYTOMEGALOVIRUS TEST POSITIVE [None]
  - HAEMOGLOBIN DECREASED [None]
  - PROTEIN URINE PRESENT [None]
  - SYSTEMIC LUPUS ERYTHEMATOSUS [None]
